FAERS Safety Report 8114595-8 (Version None)
Quarter: 2012Q1

REPORT INFORMATION
  Report Type: 
  Country: None (occurrence: None)
  Receive Date: 20120206
  Receipt Date: 20120202
  Transmission Date: 20120608
  Serious: No
  Sender: FDA-Public Use
  Company Number: US-PFIZER INC-2012030247

PATIENT
  Sex: Female
  Weight: 97.959 kg

DRUGS (4)
  1. CHANTIX [Suspect]
     Dosage: 1 MG, 2X/DAY
  2. CHANTIX [Suspect]
     Indication: SMOKING CESSATION THERAPY
     Dosage: 0.5 MG, DAILY
     Dates: start: 20110701, end: 20110101
  3. CHANTIX [Suspect]
     Dosage: UNK
     Dates: start: 20111001
  4. RISPERDAL [Concomitant]
     Indication: THINKING ABNORMAL
     Dosage: 4 MG, DAILY

REACTIONS (1)
  - STRESS [None]
